FAERS Safety Report 7715520-1 (Version None)
Quarter: 2011Q3

REPORT INFORMATION
  Report Type: 
  Country: None (occurrence: None)
  Receive Date: 20110822
  Receipt Date: 20110810
  Transmission Date: 20111222
  Serious: Yes (Life-Threatening, Other)
  Sender: FDA-Public Use
  Company Number: LEO-2011-00664

PATIENT
  Age: 70 Year
  Sex: Male

DRUGS (1)
  1. INNOHEP [Suspect]
     Indication: DEEP VEIN THROMBOSIS
     Dosage: 175 IU/KG (1 IN 1 D, SUBCUTANEOUS
     Route: 058

REACTIONS (1)
  - DEEP VEIN THROMBOSIS [None]
